FAERS Safety Report 5141083-3 (Version None)
Quarter: 2006Q4

REPORT INFORMATION
  Report Type: 
  Country: None (occurrence: None)
  Receive Date: 20061101
  Receipt Date: 20061023
  Transmission Date: 20070319
  Serious: Yes (Hospitalization)
  Sender: FDA-Public Use
  Company Number: FR-BAYER-200611022BFR

PATIENT
  Age: 77 Year
  Sex: Male

DRUGS (13)
  1. SORAFENIB [Suspect]
     Indication: RENAL CELL CARCINOMA STAGE UNSPECIFIED
     Dosage: TOTAL DAILY DOSE: 800 MG  UNIT DOSE: 200 MG
     Route: 048
     Dates: start: 20060427, end: 20060608
  2. SORAFENIB [Suspect]
     Dosage: TOTAL DAILY DOSE: 400 MG  UNIT DOSE: 200 MG
     Route: 048
     Dates: start: 20060608
  3. SECTRAL [Concomitant]
     Indication: PROPHYLAXIS
     Route: 065
     Dates: start: 19990101
  4. ASPIRIN [Concomitant]
     Indication: THROMBOSIS PROPHYLAXIS
     Route: 065
     Dates: start: 19990101, end: 20060801
  5. ZOLPIDEM TARTRATE [Concomitant]
     Indication: INSOMNIA
     Route: 065
     Dates: start: 20060101
  6. STABLON [Concomitant]
     Indication: DEPRESSION
     Route: 065
     Dates: start: 20050901
  7. DAFALGAN [Concomitant]
     Indication: MUSCULOSKELETAL CHEST PAIN
     Route: 065
     Dates: start: 20060404
  8. DURAGESIC-100 [Concomitant]
     Indication: MUSCULOSKELETAL CHEST PAIN
     Route: 065
     Dates: start: 20060806
  9. NEURONTIN [Concomitant]
     Indication: MUSCULOSKELETAL CHEST PAIN
     Route: 065
     Dates: start: 20060806
  10. OXYCONTIN [Concomitant]
     Indication: MUSCULOSKELETAL CHEST PAIN
     Route: 065
     Dates: start: 20060809
  11. OXYNORM [Concomitant]
     Indication: MUSCULOSKELETAL CHEST PAIN
     Route: 065
     Dates: start: 20060809
  12. VOGALENE [Concomitant]
     Indication: NAUSEA
     Route: 065
     Dates: start: 20060809
  13. HALDOL [Concomitant]
     Indication: DEPRESSION
     Route: 065
     Dates: start: 20060809

REACTIONS (1)
  - COMA [None]
